FAERS Safety Report 6498229-4 (Version None)
Quarter: 2009Q4

REPORT INFORMATION
  Report Type: 
  Country: None (occurrence: None)
  Receive Date: 20091215
  Receipt Date: 20091210
  Transmission Date: 20100525
  Serious: Yes (Death)
  Sender: FDA-Public Use
  Company Number: A0835023A

PATIENT
  Sex: Female

DRUGS (1)
  1. SERETIDE [Suspect]
     Dosage: 1PUFF PER DAY
     Route: 055
     Dates: start: 20091026

REACTIONS (2)
  - ASTHMATIC CRISIS [None]
  - RESPIRATORY FAILURE [None]
